FAERS Safety Report 17362392 (Version 1)
Quarter: 2020Q1

REPORT INFORMATION
  Report Type: Spontaneous
  Country: US (occurrence: US)
  Receive Date: 20200120
  Receipt Date: 20200120
  Transmission Date: 20200409
  Serious: Yes (Hospitalization)
  Sender: FDA-Public Use
  Company Number: None

PATIENT
  Age: 51 Year
  Sex: Female

DRUGS (3)
  1. NEUPOGEN [Suspect]
     Active Substance: FILGRASTIM
     Indication: NEUTROPENIA
     Route: 058
     Dates: start: 20190212
  2. TYLENOL [Concomitant]
     Active Substance: ACETAMINOPHEN
  3. POTASSIUM CITRATEMEQ TABLETS [Concomitant]

REACTIONS (1)
  - Hospitalisation [None]
